FAERS Safety Report 9539328 (Version 1)
Quarter: 2013Q3

REPORT INFORMATION
  Report Type: Spontaneous
  Country: FR (occurrence: None)
  Receive Date: 20130917
  Receipt Date: 20130917
  Transmission Date: 20140515
  Serious: Yes (Hospitalization)
  Sender: FDA-Public Use
  Company Number: 7235169

PATIENT
  Age: 1 Day
  Sex: Female
  Weight: 2.44 kg

DRUGS (7)
  1. LEVOTHYROX [Suspect]
     Indication: PRODUCT USED FOR UNKNOWN INDICATION
     Dosage: PRODUCT TAKEN BY MOTHER
     Dates: start: 20130627
  2. XANAX [Suspect]
     Indication: PRODUCT USED FOR UNKNOWN INDICATION
     Dosage: POSSIBLE DAILY DOSE UPPER THAN 10 DISAGE FORMS?PRODUCT TAKEN BY MOTHER
  3. ZOPICLONE [Suspect]
     Indication: PRODUCT USED FOR UNKNOWN INDICATION
     Dosage: PRODUCT TAKEN BY MOTHER
     Dates: end: 20130627
  4. SERTRALINE (SERTRALINE) (SERTRALINE) [Suspect]
     Indication: PRODUCT USED FOR UNKNOWN INDICATION
     Dosage: PRODUCT TAKEN BY MOTHER?FROM WEEK 8 TO WEEK 38 OF MOTHER^S AMENORRHEA
     Dates: end: 20130627
  5. SERESTA (OXAZEPAM) [Suspect]
     Indication: PRODUCT USED FOR UNKNOWN INDICATION
     Dosage: PRODUCT TAKEN BY MOTHER
     Dates: end: 20130627
  6. INEXIUM [Suspect]
     Indication: GASTROOESOPHAGEAL REFLUX DISEASE
     Dosage: PRODUCT TAKEN BY MOTHER?FROM WEEK 8 TO WEEK 38 OF MOTHER^S AMENORRHEA
     Dates: end: 20130627
  7. INSULIN [Suspect]
     Indication: TYPE 1 DIABETES MELLITUS
     Dosage: PRODUCT TAKEN BY MOTHER
     Dates: end: 20130627

REACTIONS (5)
  - Foetal malnutrition [None]
  - Hypoglycaemia neonatal [None]
  - Agitation neonatal [None]
  - Apnoea neonatal [None]
  - Foetal exposure during pregnancy [None]
